FAERS Safety Report 5019393-X (Version None)
Quarter: 2006Q2

REPORT INFORMATION
  Report Type: 
  Country: None (occurrence: None)
  Receive Date: 20060531
  Receipt Date: 20060518
  Transmission Date: 20061013
  Serious: Yes (Hospitalization)
  Sender: FDA-Public Use
  Company Number: 2006056236

PATIENT
  Age: 75 Year
  Sex: Female
  Weight: 43 kg

DRUGS (7)
  1. AZULFIDINE EN-TABS [Suspect]
     Indication: RHEUMATOID ARTHRITIS
     Dosage: 1000 MG (TWICE DAILY), ORAL
     Route: 048
     Dates: start: 20050818, end: 20060406
  2. LOXONIN (LOXOPROFEN SODIUM) [Concomitant]
  3. MARZULENE (SODIUM GUALENATE) [Concomitant]
  4. ALFACALCIDOL (ALFACALCIDOL) [Concomitant]
  5. OSTEN (IPRIFLAVONE) [Concomitant]
  6. NORVASC [Concomitant]
  7. ASPIRIN [Concomitant]

REACTIONS (12)
  - ANOREXIA [None]
  - APLASTIC ANAEMIA [None]
  - BONE MARROW FAILURE [None]
  - FALL [None]
  - HAEMORRHAGE SUBCUTANEOUS [None]
  - MALAISE [None]
  - NAUSEA [None]
  - PLEURISY [None]
  - PYREXIA [None]
  - RHINORRHOEA [None]
  - SUBCUTANEOUS HAEMATOMA [None]
  - VOMITING [None]
